FAERS Safety Report 10535609 (Version 1)
Quarter: 2014Q4

REPORT INFORMATION
  Report Type: Spontaneous
  Country: US (occurrence: US)
  Receive Date: 20141022
  Receipt Date: 20141022
  Transmission Date: 20150529
  Serious: Yes (Hospitalization, Other)
  Sender: FDA-Public Use
  Company Number: US-RECKITT BENCKISER PHARMACEUTICAL, INC-RB-59076-2013

PATIENT

DRUGS (5)
  1. SUBOXONE [Suspect]
     Active Substance: BUPRENORPHINE HYDROCHLORIDE\NALOXONE HYDROCHLORIDE
     Indication: DRUG DEPENDENCE
     Dosage: SUBOXONE FILM; NEONATE WAS EXPOSED TO 2-8 MG DAILY DUE TO MOTHER^S CUTTING FILM
     Route: 064
     Dates: start: 201206
  2. BUPRENORPHINE GENERIC [Suspect]
     Active Substance: BUPRENORPHINE
     Indication: DRUG DEPENDENCE
     Dosage: MOTHER WAS CUTTING THE TABLET AND TAKING 2-8 MG DAILY
     Route: 064
     Dates: end: 201208
  3. PRENATAL VITAMINS [Suspect]
     Active Substance: VITAMINS
     Indication: PREGNANCY
     Dosage: DOSING: 1 TABLET DAILY
     Route: 064
     Dates: end: 20130412
  4. NICOTINE. [Suspect]
     Active Substance: NICOTINE
     Indication: NICOTINE DEPENDENCE
     Dosage: DOSING: 1/3 PACK DAILY
     Route: 064
     Dates: start: 201206, end: 20130412
  5. BUPRENORPHINE GENERIC [Suspect]
     Active Substance: BUPRENORPHINE
     Route: 064
     Dates: start: 201208, end: 20130412

REACTIONS (3)
  - Foetal exposure during pregnancy [Recovered/Resolved]
  - Maternal drugs affecting foetus [None]
  - Drug withdrawal syndrome neonatal [Recovered/Resolved]

NARRATIVE: CASE EVENT DATE: 201206
